FAERS Safety Report 5636109-4 (Version None)
Quarter: 2008Q1

REPORT INFORMATION
  Report Type: 
  Country: None (occurrence: None)
  Receive Date: 20080220
  Receipt Date: 20080220
  Transmission Date: 20080703
  Serious: Yes (Hospitalization, Other)
  Sender: FDA-Public Use
  Company Number: None

PATIENT
  Sex: Female
  Weight: 54.4316 kg

DRUGS (1)
  1. GOODY'S POWDER BODY PAIN ASPIRIN 500 MG PER PACKET GOODY'S POWDER [Suspect]
     Indication: DYSMENORRHOEA
     Dosage: 1 PACKET EVERY 4 HOURS PO
     Route: 048
     Dates: start: 20080125, end: 20080126

REACTIONS (3)
  - INCORRECT DOSE ADMINISTERED [None]
  - INTESTINAL PERFORATION [None]
  - ULCER HAEMORRHAGE [None]
